FAERS Safety Report 15110512 (Version 3)
Quarter: 2018Q3

REPORT INFORMATION
  Report Type: Spontaneous
  Country: NL (occurrence: NL)
  Receive Date: 20180705
  Receipt Date: 20180726
  Transmission Date: 20181010
  Serious: Yes (Death, Other)
  Sender: FDA-Public Use
  Company Number: PHHY2018NL020830

PATIENT

DRUGS (20)
  1. METHOTREXATE. [Suspect]
     Active Substance: METHOTREXATE
     Indication: BURKITT^S LYMPHOMA
     Dosage: METHOTREAXATE PLUS HYDROCORTISONE ON DAY 1 (15 MG CYCLIC)
     Route: 065
  2. ADRIAMYCIN [Suspect]
     Active Substance: DOXORUBICIN HYDROCHLORIDE
     Indication: BURKITT^S LYMPHOMA
     Dosage: 40 MG/M2 ON DAY 1
     Route: 042
  3. HYDROCORTISONE. [Suspect]
     Active Substance: HYDROCORTISONE
     Indication: BURKITT^S LYMPHOMA
     Dosage: 15 MG, (DAY2, DAY 2 AND 6, DAY 1)
     Route: 037
  4. RITUXIMAB. [Suspect]
     Active Substance: RITUXIMAB
     Indication: BURKITT^S LYMPHOMA
     Dosage: 375 MG/M2 ON DAY 1
     Route: 042
  5. CYCLOPHOSPHAMIDE. [Suspect]
     Active Substance: CYCLOPHOSPHAMIDE
     Dosage: 1000 MG/M2, CYCLIC
     Route: 042
  6. ARA?C [Suspect]
     Active Substance: CYTARABINE
     Indication: BURKITT^S LYMPHOMA
     Dosage: UNK UNK, CYCLIC
     Route: 065
  7. ARA?C [Suspect]
     Active Substance: CYTARABINE
     Dosage: 70 MG ON DAY 1 AND DAY 3
     Route: 037
  8. METHOTREXATE. [Suspect]
     Active Substance: METHOTREXATE
     Dosage: 3 MG/M2, DAY 1(HIGH DOSE OF METHOTREXATE)
     Route: 042
  9. METHOTREXATE. [Suspect]
     Active Substance: METHOTREXATE
     Dosage: 240 MG/M2 ON DAY 10 (CONTINUOUS INFUSION)
     Route: 042
  10. ADRIAMYCIN [Suspect]
     Active Substance: DOXORUBICIN HYDROCHLORIDE
     Dosage: 60 MG/M2 ON DAY 2
     Route: 042
  11. VINCRISTINE [Suspect]
     Active Substance: VINCRISTINE
     Indication: BURKITT^S LYMPHOMA
     Dosage: 1.5 MG/M2 ON DAY 1 AND DAY 8
     Route: 042
  12. CYCLOPHOSPHAMIDE. [Suspect]
     Active Substance: CYCLOPHOSPHAMIDE
     Indication: BURKITT^S LYMPHOMA
     Dosage: 300 MG/M2, DAY 1
     Route: 042
  13. IFOSFAMIDE. [Suspect]
     Active Substance: IFOSFAMIDE
     Indication: BURKITT^S LYMPHOMA
     Dosage: UNK UNK, CYCLIC
     Route: 065
  14. METHOTREXATE. [Suspect]
     Active Substance: METHOTREXATE
     Dosage: 15 MG, (DAY 2 AND DAY 6)
     Route: 037
  15. PREDNISONE. [Suspect]
     Active Substance: PREDNISONE
     Indication: BURKITT^S LYMPHOMA
     Dosage: 60 MG/M2, CYCLIC(DAY 1?7)
     Route: 042
  16. RITUXIMAB. [Suspect]
     Active Substance: RITUXIMAB
     Dosage: 375 MG/M2, CYCLIC
     Route: 042
  17. VP?16 [Suspect]
     Active Substance: ETOPOSIDE
     Indication: BURKITT^S LYMPHOMA
     Dosage: 200 MG/M2, CYCLIC(DAY 2?5)
     Route: 042
  18. CYCLOPHOSPHAMIDE. [Suspect]
     Active Substance: CYCLOPHOSPHAMIDE
     Dosage: 500 MG/M2, DAY 2?4
     Route: 042
  19. VINCRISTINE [Suspect]
     Active Substance: VINCRISTINE
     Dosage: 1.4 MG/M2, (DAY1 AND DAY 6)
     Route: 042
  20. VINCRISTINE [Suspect]
     Active Substance: VINCRISTINE
     Dosage: 1.4 MG/M2 (DAY 1 )
     Route: 037

REACTIONS (2)
  - Sepsis [Fatal]
  - Hepatotoxicity [Fatal]
